FAERS Safety Report 10098662 (Version 2)
Quarter: 2014Q2

REPORT INFORMATION
  Report Type: Spontaneous
  Country: DE (occurrence: DE)
  Receive Date: 20140423
  Receipt Date: 20140512
  Transmission Date: 20141212
  Serious: Yes (Death)
  Sender: FDA-Public Use
  Company Number: DE-CELGENEUS-062-21880-14041992

PATIENT
  Age: 69 Year
  Sex: 0

DRUGS (3)
  1. REVLIMID [Suspect]
     Indication: PLASMA CELL MYELOMA
     Dosage: 25 MILLIGRAM
     Route: 048
     Dates: start: 20121105, end: 20130321
  2. BENDAMUSTINE [Suspect]
     Indication: PLASMA CELL MYELOMA
     Route: 065
     Dates: end: 20130305
  3. DEXAMETHASONE [Suspect]
     Indication: PLASMA CELL MYELOMA
     Route: 065
     Dates: end: 20130305

REACTIONS (1)
  - Plasma cell myeloma [Fatal]
